FAERS Safety Report 9833971 (Version 3)
Quarter: 2016Q2

REPORT INFORMATION
  Report Type: Spontaneous
  Country: IN (occurrence: IN)
  Receive Date: 20140122
  Receipt Date: 20160505
  Transmission Date: 20160815
  Serious: Yes (Other)
  Sender: FDA-Public Use
  Company Number: IN-BRISTOL-MYERS SQUIBB COMPANY-20039129

PATIENT
  Age: 24 Year
  Sex: Female

DRUGS (12)
  1. CLOMIPHENE CITRATE. [Suspect]
     Active Substance: CLOMIPHENE CITRATE
     Indication: OVULATION INDUCTION
     Dosage: 100 MG, UNK
     Route: 065
  2. METFORMIN HYDROCHLORIDE. [Suspect]
     Active Substance: METFORMIN HYDROCHLORIDE
     Indication: PROPHYLAXIS
     Dosage: 500 MG, QD
     Route: 065
  3. PREDNISOLONE. [Suspect]
     Active Substance: PREDNISOLONE
     Indication: AMENORRHOEA
     Dosage: 5 MG, UNK
     Route: 048
     Dates: start: 2012
  4. PREDNISOLONE. [Suspect]
     Active Substance: PREDNISOLONE
     Dosage: 7.50 MG, UNK
     Route: 048
     Dates: start: 20121214
  5. PREDNISOLONE. [Suspect]
     Active Substance: PREDNISOLONE
     Dosage: 8.75 MG, UNK
     Route: 048
     Dates: start: 20130221
  6. CALCIUM [Concomitant]
     Active Substance: CALCIUM
     Indication: SUPPLEMENTATION THERAPY
     Route: 065
  7. PROGESTERONE. [Suspect]
     Active Substance: PROGESTERONE
     Indication: PROPHYLAXIS
     Dosage: 100 MG, QWK
     Route: 030
  8. FOLIC ACID. [Concomitant]
     Active Substance: FOLIC ACID
     Indication: SUPPLEMENTATION THERAPY
     Dosage: 5 MG, UNK
     Route: 065
  9. PROGESTERONE. [Suspect]
     Active Substance: PROGESTERONE
     Indication: VAGINAL HAEMORRHAGE
     Dosage: MICRONIZED
     Route: 065
  10. RITODRINE [Suspect]
     Active Substance: RITODRINE
     Indication: TOCOLYSIS
     Dosage: UNK
     Route: 041
  11. PREDNISOLONE. [Suspect]
     Active Substance: PREDNISOLONE
     Dosage: 6.25 MG, UNK
     Route: 048
     Dates: start: 20121121
  12. BETAMETHASONE. [Suspect]
     Active Substance: BETAMETHASONE
     Indication: PRODUCT USED FOR UNKNOWN INDICATION
     Route: 065

REACTIONS (6)
  - Premature rupture of membranes [Unknown]
  - Breast feeding [Unknown]
  - Maternal exposure during pregnancy [Recovered/Resolved]
  - Live birth [Unknown]
  - Abortion threatened [Recovered/Resolved]
  - Off label use [Unknown]

NARRATIVE: CASE EVENT DATE: 20130329
